FAERS Safety Report 24420750 (Version 1)
Quarter: 2024Q4

REPORT INFORMATION
  Report Type: Report from Study
  Country: US (occurrence: US)
  Receive Date: 20241010
  Receipt Date: 20241010
  Transmission Date: 20250114
  Serious: Yes (Hospitalization)
  Sender: TAKEDA
  Company Number: US-TAKEDA-2023TUS024112

PATIENT
  Sex: Female

DRUGS (1)
  1. VORTIOXETINE [Suspect]
     Active Substance: VORTIOXETINE
     Indication: Product used for unknown indication
     Dosage: 20 MILLIGRAM
     Route: 065

REACTIONS (4)
  - Cardiac disorder [Unknown]
  - Product use issue [Unknown]
  - COVID-19 [Unknown]
  - Product dose omission issue [Unknown]
